FAERS Safety Report 5287623-5 (Version None)
Quarter: 2007Q1

REPORT INFORMATION
  Report Type: 
  Country: None (occurrence: None)
  Receive Date: 20070105
  Receipt Date: 20060913
  Transmission Date: 20070707
  Serious: Yes (Other)
  Sender: FDA-Public Use
  Company Number: 2006BH013357

PATIENT

DRUGS (1)
  1. VANCOMYCIN HCL [Suspect]
     Indication: DRUG USE FOR UNKNOWN INDICATION
     Dates: start: 20060913

REACTIONS (1)
  - RED MAN SYNDROME [None]
